FAERS Safety Report 10056468 (Version 1)
Quarter: 2014Q2

REPORT INFORMATION
  Report Type: Spontaneous
  Country: IT (occurrence: IT)
  Receive Date: 20140403
  Receipt Date: 20140403
  Transmission Date: 20141212
  Serious: Yes (Hospitalization)
  Sender: FDA-Public Use
  Company Number: IT-TAKEDA-2014TUS002521

PATIENT
  Sex: 0

DRUGS (9)
  1. FEBUXOSTAT [Suspect]
     Dosage: UNK
     Route: 048
  2. ALLOPURINOLO [Suspect]
     Dosage: UNK
     Route: 048
  3. SOLOSA [Concomitant]
     Dosage: UNK
  4. TOTALIP [Concomitant]
     Dosage: UNK
  5. COUMADIN                           /00014802/ [Concomitant]
     Dosage: UNK
  6. FUROSEMIDE [Concomitant]
     Dosage: UNK
  7. NITROGLYCERIN [Concomitant]
     Dosage: UNK
  8. BISOPROLOL HEMIFUMARATE [Concomitant]
     Dosage: UNK
  9. OMEPRAZOLE [Concomitant]
     Dosage: UNK

REACTIONS (2)
  - Lipase increased [Not Recovered/Not Resolved]
  - Amylase increased [Not Recovered/Not Resolved]
